FAERS Safety Report 17983938 (Version 1)
Quarter: 2020Q3

REPORT INFORMATION
  Report Type: Spontaneous
  Country: US (occurrence: US)
  Receive Date: 20200706
  Receipt Date: 20200706
  Transmission Date: 20201103
  Serious: Yes (Other)
  Sender: FDA-Public Use
  Company Number: None

PATIENT
  Age: 26 Year
  Sex: Male
  Weight: 54 kg

DRUGS (2)
  1. ACETAMINOPHEN?CODEINE 300?30 MG [Suspect]
     Active Substance: ACETAMINOPHEN\CODEINE PHOSPHATE
     Indication: MUSCLE STRAIN
     Dosage: ?          QUANTITY:30 TABLET(S);?
     Route: 048
     Dates: start: 20200604, end: 20200620
  2. ACETAMINOPHEN?CODEINE 300?30 MG [Suspect]
     Active Substance: ACETAMINOPHEN\CODEINE PHOSPHATE
     Indication: ARTHRALGIA
     Dosage: ?          QUANTITY:30 TABLET(S);?
     Route: 048
     Dates: start: 20200604, end: 20200620

REACTIONS (6)
  - Cerebral disorder [None]
  - Toxicity to various agents [None]
  - Hypoaesthesia [None]
  - Suspected product tampering [None]
  - Abdominal discomfort [None]
  - Inadequate analgesia [None]

NARRATIVE: CASE EVENT DATE: 20200618
